FAERS Safety Report 6786509-4 (Version None)
Quarter: 2010Q2

REPORT INFORMATION
  Report Type: 
  Country: None (occurrence: None)
  Receive Date: 20100623
  Receipt Date: 20100615
  Transmission Date: 20101027
  Serious: Yes (Other)
  Sender: FDA-Public Use
  Company Number: B0661785A

PATIENT
  Age: 7 Year
  Sex: Male

DRUGS (4)
  1. FLUTICASONE [Suspect]
     Route: 055
  2. BUDESONIDE [Suspect]
     Dosage: 100MCG TWICE PER DAY
  3. RITONAVIR [Suspect]
     Indication: HIV INFECTION
  4. SALMETEROL [Concomitant]

REACTIONS (7)
  - ADRENOCORTICAL INSUFFICIENCY ACUTE [None]
  - BLOOD CORTISOL DECREASED [None]
  - CENTRAL OBESITY [None]
  - CUSHING'S SYNDROME [None]
  - DRUG INTERACTION [None]
  - HIRSUTISM [None]
  - LIPOHYPERTROPHY [None]
